FAERS Safety Report 12675480 (Version 2)
Quarter: 2019Q1

REPORT INFORMATION
  Report Type: Spontaneous
  Country: SE (occurrence: SE)
  Receive Date: 20160823
  Receipt Date: 20190217
  Transmission Date: 20190417
  Serious: Yes (Life-Threatening)
  Sender: FDA-Public Use
  Company Number: SE-JNJFOC-20160807901

PATIENT
  Age: 34 Year
  Sex: Female
  Weight: 75 kg

DRUGS (2)
  1. IPREN [Suspect]
     Active Substance: IBUPROFEN
     Route: 065
  2. IPREN [Suspect]
     Active Substance: IBUPROFEN
     Indication: EXOSTOSIS
     Dosage: DOSE: 1 (UNIT NOT SPECIFIED)
     Route: 065
     Dates: start: 20160718, end: 20160724

REACTIONS (8)
  - Off label use [Not Recovered/Not Resolved]
  - Product use in unapproved indication [Not Recovered/Not Resolved]
  - Palpitations [Not Recovered/Not Resolved]
  - Vision blurred [Not Recovered/Not Resolved]
  - Dizziness [Not Recovered/Not Resolved]
  - Swelling face [Not Recovered/Not Resolved]
  - Fatigue [Not Recovered/Not Resolved]
  - Pharyngeal paraesthesia [Not Recovered/Not Resolved]

NARRATIVE: CASE EVENT DATE: 20160718
